FAERS Safety Report 7278357-6 (Version None)
Quarter: 2011Q1

REPORT INFORMATION
  Report Type: 
  Country: None (occurrence: None)
  Receive Date: 20110207
  Receipt Date: 20110128
  Transmission Date: 20110831
  Serious: Yes (Other)
  Sender: FDA-Public Use
  Company Number: SE-NAPPMUNDI-GBR-2011-0007687

PATIENT
  Sex: Female

DRUGS (1)
  1. NORSPAN [Suspect]
     Indication: SICCA SYNDROME
     Route: 062

REACTIONS (5)
  - PSYCHOTIC DISORDER [None]
  - DEPRESSION [None]
  - MANIA [None]
  - AMNESIA [None]
  - OBSESSIVE THOUGHTS [None]
